FAERS Safety Report 8395461-X (Version None)
Quarter: 2012Q2

REPORT INFORMATION
  Report Type: 
  Country: None (occurrence: None)
  Receive Date: 20120525
  Receipt Date: 20120525
  Transmission Date: 20120825
  Serious: No
  Sender: FDA-Public Use
  Company Number: None

PATIENT
  Sex: Male

DRUGS (1)
  1. FLUNISOLIDE [Suspect]
     Dosage: 0.025MG NASAL SPRAY
     Route: 045

REACTIONS (1)
  - INSOMNIA [None]
